FAERS Safety Report 8123744-7 (Version None)
Quarter: 2012Q1

REPORT INFORMATION
  Report Type: 
  Country: None (occurrence: None)
  Receive Date: 20120208
  Receipt Date: 20120131
  Transmission Date: 20120608
  Serious: Yes (Other)
  Sender: FDA-Public Use
  Company Number: FR-MERCK-1202FRA00002

PATIENT
  Age: 42 Year
  Sex: Male

DRUGS (3)
  1. ATAZANAVIR SULFATE [Suspect]
     Indication: HIV INFECTION
     Route: 048
     Dates: start: 20050415, end: 20110315
  2. ISENTRESS [Suspect]
     Indication: HIV INFECTION
     Route: 048
     Dates: start: 20081016
  3. ABACAVIR SULFATE [Suspect]
     Indication: HIV INFECTION
     Route: 048
     Dates: start: 20020315, end: 20110315

REACTIONS (1)
  - DYSLIPIDAEMIA [None]
